FAERS Safety Report 4990934-1 (Version None)
Quarter: 2006Q2

REPORT INFORMATION
  Report Type: 
  Country: None (occurrence: None)
  Receive Date: 20060428
  Receipt Date: 20060417
  Transmission Date: 20061013
  Serious: Yes (Death, Other)
  Sender: FDA-Public Use
  Company Number: 2006-00290

PATIENT
  Age: 31 Year
  Sex: Female

DRUGS (11)
  1. VELCADE [Suspect]
     Indication: MULTIPLE MYELOMA
     Dosage: 1.30 + 1.00 + 0.70 MG/M2, IV BOLUS - SEE IMAGE
     Route: 040
     Dates: start: 20050211, end: 20050221
  2. VELCADE [Suspect]
     Indication: MULTIPLE MYELOMA
     Dosage: 1.30 + 1.00 + 0.70 MG/M2, IV BOLUS - SEE IMAGE
     Route: 040
     Dates: start: 20050304, end: 20050304
  3. VELCADE [Suspect]
     Indication: MULTIPLE MYELOMA
     Dosage: 1.30 + 1.00 + 0.70 MG/M2, IV BOLUS - SEE IMAGE
     Route: 040
     Dates: start: 20050311, end: 20050314
  4. VALTREX [Concomitant]
  5. SULFAMETHOXAZOLE + TRIMETHOPRIM [Concomitant]
  6. PROGRAF [Concomitant]
  7. ITRACONAZOLE [Concomitant]
  8. PREDNISOLONE [Concomitant]
  9. ZANTAC [Concomitant]
  10. METLIGINE (MIDODRINE HYDROCHLORIDE) [Concomitant]
  11. AMOBAN (ZOPICLONE) [Concomitant]

REACTIONS (17)
  - ALANINE AMINOTRANSFERASE INCREASED [None]
  - ASPARTATE AMINOTRANSFERASE INCREASED [None]
  - BLOOD ALKALINE PHOSPHATASE INCREASED [None]
  - BLOOD CREATININE INCREASED [None]
  - BLOOD LACTATE DEHYDROGENASE INCREASED [None]
  - BLOOD POTASSIUM DECREASED [None]
  - BLOOD UREA INCREASED [None]
  - HAEMOGLOBIN DECREASED [None]
  - INTERSTITIAL LUNG DISEASE [None]
  - LUNG DISORDER [None]
  - MALAISE [None]
  - METHICILLIN-RESISTANT STAPHYLOCOCCAL AUREUS TEST POSITIVE [None]
  - PAIN [None]
  - PARAESTHESIA [None]
  - PLATELET COUNT DECREASED [None]
  - RESPIRATORY FAILURE [None]
  - WHITE BLOOD CELL COUNT DECREASED [None]
